FAERS Safety Report 4422332-3 (Version None)
Quarter: 2004Q3

REPORT INFORMATION
  Report Type: 
  Country: None (occurrence: None)
  Receive Date: 20040810
  Receipt Date: 20040802
  Transmission Date: 20050211
  Serious: Yes (Hospitalization)
  Sender: FDA-Public Use
  Company Number: 375678

PATIENT
  Age: 73 Year
  Sex: Female

DRUGS (6)
  1. KREDEX [Suspect]
     Indication: DRUG USE FOR UNKNOWN INDICATION
     Dosage: 3.125MG PER DAY
     Route: 048
     Dates: start: 20040512, end: 20040603
  2. TRIATEC [Concomitant]
     Dates: start: 20040429, end: 20040603
  3. LANTUS [Concomitant]
     Dates: end: 20040603
  4. TAHOR [Concomitant]
     Dates: start: 20040429, end: 20040603
  5. ASPIRIN [Concomitant]
     Dates: start: 20040429, end: 20040603
  6. LASIX [Concomitant]
     Dates: start: 20040429, end: 20040603

REACTIONS (6)
  - ACCIDENTAL OVERDOSE [None]
  - ATRIOVENTRICULAR BLOCK FIRST DEGREE [None]
  - CARDIOGENIC SHOCK [None]
  - GENERAL PHYSICAL HEALTH DETERIORATION [None]
  - HYPOTENSION [None]
  - NAUSEA [None]
